FAERS Safety Report 5257947-6 (Version None)
Quarter: 2007Q1

REPORT INFORMATION
  Report Type: 
  Country: None (occurrence: None)
  Receive Date: 20070307
  Receipt Date: 20070305
  Transmission Date: 20070707
  Serious: Yes (Life-Threatening, Hospitalization)
  Sender: FDA-Public Use
  Company Number: US-GLAXOSMITHKLINE-A0626419A

PATIENT
  Age: 71 Year
  Sex: Female
  Weight: 76.4 kg

DRUGS (3)
  1. REQUIP [Suspect]
     Indication: RESTLESS LEGS SYNDROME
     Route: 048
  2. ACTIGALL [Concomitant]
  3. MIRALAX [Concomitant]

REACTIONS (2)
  - CHOLELITHIASIS [None]
  - MALAISE [None]
